FAERS Safety Report 9753409 (Version 1)
Quarter: 2013Q4

REPORT INFORMATION
  Report Type: Spontaneous
  Country: US (occurrence: US)
  Receive Date: 20131213
  Receipt Date: 20131213
  Transmission Date: 20140711
  Serious: Yes (Other)
  Sender: FDA-Public Use
  Company Number: US-TEVA-403557USA

PATIENT
  Age: 31 Year
  Sex: Female
  Weight: 64.01 kg

DRUGS (1)
  1. PARAGARD 380A [Suspect]
     Indication: CONTRACEPTION
     Route: 015
     Dates: start: 20130418, end: 20130503

REACTIONS (4)
  - Device dislocation [Recovered/Resolved]
  - Device expulsion [Recovered/Resolved]
  - Abdominal pain [Recovered/Resolved]
  - Metrorrhagia [Recovered/Resolved]
